FAERS Safety Report 6124093-9 (Version None)
Quarter: 2009Q1

REPORT INFORMATION
  Report Type: 
  Country: None (occurrence: None)
  Receive Date: 20090317
  Receipt Date: 20090302
  Transmission Date: 20090719
  Serious: Yes (Hospitalization)
  Sender: FDA-Public Use
  Company Number: DSA_33260_2009

PATIENT
  Sex: Female

DRUGS (6)
  1. LORAZEPAM [Suspect]
     Dosage: (2 MG 1X, ORAL)
     Route: 048
     Dates: start: 20090219, end: 20090219
  2. ATOSIL /00133602/ (ATOSIL - PROMETHAZINE HYDROCHLORIDE) (NOT SPECIFIED [Suspect]
     Dosage: (40 MG 1X, ORAL)
     Route: 048
     Dates: start: 20090219, end: 20090219
  3. CEFUROXIME [Suspect]
     Dosage: (1000 MG 1X, ORAL)
     Route: 048
     Dates: start: 20090219, end: 20090219
  4. CITALOPRAM HYDROBROMIDE [Suspect]
     Dosage: (280 MG 1X, ORAL)
     Route: 048
     Dates: start: 20090219, end: 20090219
  5. CYMBALTA [Suspect]
     Dosage: (360 MG 1X, ORAL)
     Route: 048
     Dates: start: 20090219, end: 20090219
  6. SEROQUEL [Suspect]
     Dosage: (2700 MG 1X, ORAL)
     Route: 048
     Dates: start: 20090219, end: 20090219

REACTIONS (5)
  - COMA [None]
  - HYPOTENSION [None]
  - MULTIPLE DRUG OVERDOSE INTENTIONAL [None]
  - SUICIDE ATTEMPT [None]
  - TACHYCARDIA [None]
